FAERS Safety Report 17606158 (Version 2)
Quarter: 2020Q3

REPORT INFORMATION
  Report Type: Spontaneous
  Country: TR (occurrence: TR)
  Receive Date: 20200331
  Receipt Date: 20200923
  Transmission Date: 20201102
  Serious: Yes (Other)
  Sender: FDA-Public Use
  Company Number: TR-ASTRAZENECA-2020SE44078

PATIENT
  Age: 58 Year
  Sex: Female
  Weight: 77 kg

DRUGS (8)
  1. BYETTA [Suspect]
     Active Substance: EXENATIDE
     Indication: TYPE 2 DIABETES MELLITUS
     Route: 065
  2. DIOVAN [Concomitant]
     Active Substance: VALSARTAN
     Indication: HYPERTENSION
     Dosage: 160 MG
     Dates: start: 2018
  3. NORVASC [Concomitant]
     Active Substance: AMLODIPINE BESYLATE
     Indication: HYPERTENSION
     Dates: start: 2018
  4. BYETTA [Suspect]
     Active Substance: EXENATIDE
     Indication: BLOOD GLUCOSE INCREASED
     Route: 065
  5. GLIFOR [Concomitant]
     Active Substance: METFORMIN HYDROCHLORIDE
  6. BYETTA [Suspect]
     Active Substance: EXENATIDE
     Indication: BLOOD GLUCOSE INCREASED
     Route: 065
     Dates: start: 20180712, end: 20190917
  7. BYETTA [Suspect]
     Active Substance: EXENATIDE
     Indication: TYPE 2 DIABETES MELLITUS
     Route: 065
     Dates: start: 20180712, end: 20190917
  8. FLUDEX [Concomitant]
     Indication: HYPERTENSION
     Dosage: 1, 5 MG ONCE A DAY SINCE 2018

REACTIONS (8)
  - Nausea [Recovered/Resolved]
  - Vomiting [Recovered/Resolved]
  - Gastritis [Unknown]
  - Pancreatitis [Recovered/Resolved]
  - Gastric polyps [Recovered/Resolved]
  - Neuroendocrine tumour [Not Recovered/Not Resolved]
  - Blood gastrin increased [Not Recovered/Not Resolved]
  - Sleep apnoea syndrome [Unknown]

NARRATIVE: CASE EVENT DATE: 2018
